FAERS Safety Report 4414211-2 (Version None)
Quarter: 2004Q3

REPORT INFORMATION
  Report Type: 
  Country: None (occurrence: None)
  Receive Date: 20040729
  Receipt Date: 20040726
  Transmission Date: 20050211
  Serious: Yes (Death)
  Sender: FDA-Public Use
  Company Number: TPG0T01251371

PATIENT
  Age: 68 Year
  Sex: Male

DRUGS (5)
  1. TRENANTONE (LEUPRORELIN) (11.25 MILLIGRAM, INJECTION) [Suspect]
     Indication: PROSTATE CANCER
     Dosage: SEE IMAGE
     Route: 058
     Dates: start: 19980301, end: 19980301
  2. TRENANTONE (LEUPRORELIN) (11.25 MILLIGRAM, INJECTION) [Suspect]
     Indication: PROSTATE CANCER
     Dosage: SEE IMAGE
     Route: 058
     Dates: start: 19971210, end: 19980325
  3. THEOPHYLLINE [Concomitant]
  4. VERAPAMIL HYDROCHLORIDE [Concomitant]
  5. DIGOXIN [Concomitant]

REACTIONS (2)
  - CARDIAC FAILURE [None]
  - CONDITION AGGRAVATED [None]
